FAERS Safety Report 19820294 (Version 2)
Quarter: 2021Q3

REPORT INFORMATION
  Report Type: Spontaneous
  Country: US (occurrence: US)
  Receive Date: 20210913
  Receipt Date: 20210915
  Transmission Date: 20211014
  Serious: Yes (Other)
  Sender: FDA-Public Use
  Company Number: US-PROCTER_AND_GAMBLE-GS21082230

PATIENT
  Age: 61 Year
  Sex: Female

DRUGS (1)
  1. CREST 3D WHITE WHITENING THERAPY DEEP CLEAN CHARCOAL [Suspect]
     Active Substance: SODIUM FLUORIDE
     Dosage: USED VERY LITTLE, A DOT.
     Route: 002
     Dates: start: 20210902, end: 20210902

REACTIONS (3)
  - Swollen tongue [Not Recovered/Not Resolved]
  - Hypersensitivity [Not Recovered/Not Resolved]
  - Documented hypersensitivity to administered product [Unknown]

NARRATIVE: CASE EVENT DATE: 20210902
